FAERS Safety Report 7553386-3 (Version None)
Quarter: 2011Q2

REPORT INFORMATION
  Report Type: 
  Country: None (occurrence: None)
  Receive Date: 20110617
  Receipt Date: 20110429
  Transmission Date: 20111010
  Serious: No
  Sender: FDA-Public Use
  Company Number: A0925213A

PATIENT
  Age: 80 Year
  Sex: Male

DRUGS (1)
  1. PROMACTA [Suspect]
     Dosage: 50MG PER DAY
     Route: 048
     Dates: start: 20110301

REACTIONS (2)
  - CONTUSION [None]
  - OEDEMA PERIPHERAL [None]
